FAERS Safety Report 6339837-0 (Version None)
Quarter: 2009Q3

REPORT INFORMATION
  Report Type: 
  Country: None (occurrence: None)
  Receive Date: 20090903
  Receipt Date: 20090901
  Transmission Date: 20100115
  Serious: Yes (Death)
  Sender: FDA-Public Use
  Company Number: PHHY2009MX37215

PATIENT
  Age: 64 Year
  Sex: Male

DRUGS (1)
  1. DIOVAN [Suspect]
     Indication: HYPERTENSION
     Dosage: 160 MG, BID
     Route: 048

REACTIONS (1)
  - MYOCARDIAL INFARCTION [None]
